FAERS Safety Report 9326549 (Version 1)
Quarter: 2013Q2

REPORT INFORMATION
  Report Type: Spontaneous
  Country: US (occurrence: None)
  Receive Date: 20130603
  Receipt Date: 20130603
  Transmission Date: 20140414
  Serious: Yes (Other)
  Sender: FDA-Public Use
  Company Number: None

PATIENT
  Age: 31 Year
  Sex: Female
  Weight: 52.16 kg

DRUGS (1)
  1. AVELOX [Suspect]
     Indication: SINUSITIS
     Dates: start: 20130429, end: 20130504

REACTIONS (9)
  - Paraesthesia [None]
  - Myalgia [None]
  - Tendon disorder [None]
  - Nightmare [None]
  - Pain in extremity [None]
  - Product quality issue [None]
  - Asthenia [None]
  - Arthropathy [None]
  - Dysstasia [None]
